FAERS Safety Report 7615736-9 (Version None)
Quarter: 2011Q3

REPORT INFORMATION
  Report Type: 
  Country: None (occurrence: None)
  Receive Date: 20110711
  Receipt Date: 20110701
  Transmission Date: 20111222
  Serious: Yes (Life-Threatening, Hospitalization)
  Sender: FDA-Public Use
  Company Number: OMPQ-NO-1107S-0634

PATIENT
  Age: 18 Year
  Sex: Female

DRUGS (1)
  1. OMNIPAQUE 70 [Suspect]
     Indication: NERVOUS SYSTEM DISORDER
     Dosage: 20 ML, SINGLE DOSE, INTRAVENOUS
     Route: 042
     Dates: start: 20110612, end: 20110612

REACTIONS (2)
  - VASOSPASM [None]
  - ANAPHYLACTOID REACTION [None]
